FAERS Safety Report 5644554-6 (Version None)
Quarter: 2008Q1

REPORT INFORMATION
  Report Type: 
  Country: None (occurrence: None)
  Receive Date: 20080229
  Receipt Date: 20070302
  Transmission Date: 20080703
  Serious: No
  Sender: FDA-Public Use
  Company Number: A0641599A

PATIENT
  Age: 41 Year
  Sex: Female

DRUGS (6)
  1. VALTREX [Suspect]
     Indication: GENITAL HERPES
     Dosage: 500MG PER DAY
     Route: 048
     Dates: start: 20060901
  2. LEVOXYL [Concomitant]
  3. TRILEPTAL [Concomitant]
  4. SEROQUEL [Concomitant]
  5. LAMICTAL [Concomitant]
  6. ORTHO-NOVUM [Concomitant]

REACTIONS (1)
  - DRUG INEFFECTIVE [None]
